FAERS Safety Report 4769078-X (Version None)
Quarter: 2005Q3

REPORT INFORMATION
  Report Type: 
  Country: None (occurrence: None)
  Receive Date: 20050906
  Receipt Date: 20050513
  Transmission Date: 20060218
  Serious: No
  Sender: FDA-Public Use
  Company Number: 2005-BP-06336BP

PATIENT
  Age: 70 Year
  Sex: Male
  Weight: 72.7 kg

DRUGS (2)
  1. SPIRIVA [Suspect]
     Dosage: (18 MCG), IH
     Route: 055
     Dates: end: 20050201
  2. ADVAIR DISKUS 100/50 [Concomitant]

REACTIONS (3)
  - DERMATITIS [None]
  - RASH [None]
  - URINARY RETENTION [None]
